FAERS Safety Report 16480305 (Version 11)
Quarter: 2020Q4

REPORT INFORMATION
  Report Type: Report from Study
  Country: US (occurrence: US)
  Receive Date: 20190626
  Receipt Date: 20201128
  Transmission Date: 20210113
  Serious: Yes (Other)
  Sender: FDA-Public Use
  Company Number: US-MALLINCKRODT-T201904511

PATIENT
  Age: 81 Year
  Sex: Male
  Weight: 95 kg

DRUGS (4)
  1. REPOSITORY CORTICOTROPIN INJECTION [Suspect]
     Active Substance: CORTICOTROPIN
     Dosage: 40 UNITS/.5 MILLILITER, TWICE A WEEK
     Route: 058
     Dates: start: 20200220
  2. REPOSITORY CORTICOTROPIN INJECTION [Suspect]
     Active Substance: CORTICOTROPIN
     Dosage: 80 UNITS/1 MILLILITER, TWICE A WEEK
     Route: 058
  3. REPOSITORY CORTICOTROPIN INJECTION [Suspect]
     Active Substance: CORTICOTROPIN
     Indication: NEPHROTIC SYNDROME
     Dosage: 40 UNITS/0.5 MILLILITER, TWICE A WEEK
     Route: 058
     Dates: start: 20190610
  4. REPOSITORY CORTICOTROPIN INJECTION [Suspect]
     Active Substance: CORTICOTROPIN
     Dosage: 80 UNITS/1 MILLILITER, TWICE A WEEK
     Route: 058

REACTIONS (16)
  - Breath odour [Not Recovered/Not Resolved]
  - Asthenia [Not Recovered/Not Resolved]
  - Fatigue [Not Recovered/Not Resolved]
  - Increased appetite [Unknown]
  - Fluid retention [Recovered/Resolved]
  - Weight decreased [Recovered/Resolved]
  - Pollakiuria [Unknown]
  - Cough [Unknown]
  - Injection site pain [Recovering/Resolving]
  - Muscular weakness [Not Recovered/Not Resolved]
  - Condition aggravated [Not Recovered/Not Resolved]
  - Blood pressure increased [Unknown]
  - Insomnia [Not Recovered/Not Resolved]
  - Weight increased [Not Recovered/Not Resolved]
  - Wrong technique in product usage process [Not Recovered/Not Resolved]
  - Blood glucose increased [Not Recovered/Not Resolved]

NARRATIVE: CASE EVENT DATE: 2019
